FAERS Safety Report 8343765-9 (Version None)
Quarter: 2012Q2

REPORT INFORMATION
  Report Type: 
  Country: None (occurrence: None)
  Receive Date: 20120508
  Receipt Date: 20100616
  Transmission Date: 20120825
  Serious: Yes (Hospitalization, Other)
  Sender: FDA-Public Use
  Company Number: US-BAYER-200943019NA

PATIENT
  Age: 27 Year
  Sex: Female
  Weight: 104.31 kg

DRUGS (3)
  1. YAZ [Suspect]
     Indication: CONTRACEPTION
     Dosage: UNK
     Dates: start: 20070401
  2. YASMIN [Suspect]
     Indication: CONTRACEPTION
     Dosage: UNK
     Dates: start: 20060301, end: 20070401
  3. YASMIN [Suspect]
     Dosage: UNK
     Dates: start: 20061101, end: 20070301

REACTIONS (9)
  - DEEP VEIN THROMBOSIS [None]
  - OEDEMA PERIPHERAL [None]
  - THROMBOSIS [None]
  - PAIN IN EXTREMITY [None]
  - NAUSEA [None]
  - VOMITING [None]
  - VEIN DISORDER [None]
  - PULMONARY EMBOLISM [None]
  - VARICOSE VEIN [None]
